FAERS Safety Report 23487954 (Version 1)
Quarter: 2024Q1

REPORT INFORMATION
  Report Type: Report from Study
  Country: US (occurrence: None)
  Receive Date: 20240206
  Receipt Date: 20240206
  Transmission Date: 20240410
  Serious: Yes (Other)
  Sender: FDA-Public Use
  Company Number: 2024A027541

PATIENT
  Age: 71 Year
  Sex: Female

DRUGS (1)
  1. GEFITINIB [Suspect]
     Active Substance: GEFITINIB
     Indication: Non-small cell lung cancer
     Route: 048

REACTIONS (3)
  - Drug resistance [Unknown]
  - Malignant neoplasm progression [Unknown]
  - EGFR gene mutation [Unknown]
